FAERS Safety Report 7818384-0 (Version None)
Quarter: 2011Q4

REPORT INFORMATION
  Report Type: 
  Country: None (occurrence: None)
  Receive Date: 20111017
  Receipt Date: 20111006
  Transmission Date: 20120403
  Serious: Yes (Disabling)
  Sender: FDA-Public Use
  Company Number: SE-ASTRAZENECA-2011SE59989

PATIENT
  Age: 70 Year
  Sex: Female
  Weight: 59 kg

DRUGS (6)
  1. ATACAND HCT [Suspect]
     Indication: HYPERTENSION
     Route: 048
     Dates: start: 20070101
  2. MADOPARK [Concomitant]
  3. LITHIONIT [Suspect]
     Dates: start: 19950101
  4. FELODIPINE [Concomitant]
  5. AMANTADINE HCL [Concomitant]
  6. ENALAPRIL MALEATE [Concomitant]

REACTIONS (1)
  - PARKINSON'S DISEASE [None]
